FAERS Safety Report 6200652-X (Version None)
Quarter: 2009Q2

REPORT INFORMATION
  Report Type: 
  Country: None (occurrence: None)
  Receive Date: 20090522
  Receipt Date: 20080528
  Transmission Date: 20091009
  Serious: No
  Sender: FDA-Public Use
  Company Number: US-ALEXION-A200800125

PATIENT
  Sex: Female
  Weight: 77.551 kg

DRUGS (21)
  1. SOLIRIS [Suspect]
     Indication: PAROXYSMAL NOCTURNAL HAEMOGLOBINURIA
     Dosage: 600 MG, SINGLE
     Route: 042
     Dates: start: 20080206, end: 20080206
  2. SOLIRIS [Suspect]
     Dosage: 600 MG, SINGLE
     Route: 042
     Dates: start: 20080213, end: 20080213
  3. SOLIRIS [Suspect]
     Dosage: 600 MG, SINGLE
     Route: 042
     Dates: start: 20080220, end: 20080220
  4. SOLIRIS [Suspect]
     Dosage: 600 MG, SINGLE
     Route: 042
     Dates: start: 20080227, end: 20080227
  5. SOLIRIS [Suspect]
     Dosage: 900 MG, SINGLE
     Route: 042
     Dates: start: 20080306, end: 20080306
  6. SOLIRIS [Suspect]
     Dosage: 900 MG, SINGLE
     Route: 042
     Dates: start: 20080320, end: 20080320
  7. SOLIRIS [Suspect]
     Dosage: 900 MG, SINGLE
     Route: 042
     Dates: start: 20080403, end: 20080403
  8. SOLIRIS [Suspect]
     Dosage: 900 MG, SINGLE
     Route: 042
     Dates: start: 20080417, end: 20080417
  9. SOLIRIS [Suspect]
     Dosage: 900 MG, SINGLE
     Route: 042
     Dates: start: 20080501, end: 20080501
  10. SOLIRIS [Suspect]
     Dosage: 900 MG, SINGLE
     Route: 042
     Dates: start: 20080522, end: 20080522
  11. ACTONEL [Concomitant]
     Indication: OSTEOPOROSIS
     Dosage: WEEKLY
     Route: 048
  12. PROGAR [Concomitant]
  13. ARIXTRA [Concomitant]
     Indication: ANTICOAGULANT THERAPY
     Dosage: UNK, QD
  14. NOROXIN [Concomitant]
     Dosage: UNK, QD
     Route: 048
  15. PREVACID [Concomitant]
     Dosage: UNK, QD
     Route: 048
  16. FUROSEMIDE [Concomitant]
     Dosage: UNK, PRN
     Route: 048
  17. OSCAL D [Concomitant]
     Dosage: 500 MG, QD
     Route: 048
  18. IRON [Concomitant]
     Dosage: UNK, QD
     Route: 048
  19. FOLIC ACID [Concomitant]
     Dosage: UNK, QD
     Route: 048
  20. MULTIVITAMIN                       /00831701/ [Concomitant]
     Dosage: UNK, QD
     Route: 048
  21. ASPIRIN [Concomitant]
     Dosage: 81 MG, QD
     Route: 048

REACTIONS (2)
  - FATIGUE [None]
  - NECK PAIN [None]
